FAERS Safety Report 7625348-9 (Version None)
Quarter: 2011Q3

REPORT INFORMATION
  Report Type: 
  Country: None (occurrence: None)
  Receive Date: 20110701
  Receipt Date: 20100617
  Transmission Date: 20111222
  Serious: Yes (Other)
  Sender: FDA-Public Use
  Company Number: 7008320

PATIENT
  Age: 43 Year
  Sex: Male
  Weight: 91 kg

DRUGS (3)
  1. CITALOPRAM HYDROBROMIDE [Concomitant]
  2. STATIN (CHOLESTEROL AND TRIGLYCERIDE REDUCERS) [Concomitant]
  3. REBIF [Suspect]
     Indication: MULTIPLE SCLEROSIS
     Dosage: 44 MCG, 3 IN 1 WK, SUBCUTANEOUS
     Route: 058
     Dates: start: 20091214

REACTIONS (4)
  - SUICIDAL IDEATION [None]
  - ANXIETY [None]
  - PYREXIA [None]
  - CHILLS [None]
